FAERS Safety Report 14483937 (Version 3)
Quarter: 2018Q1

REPORT INFORMATION
  Report Type: Spontaneous
  Country: IT (occurrence: IT)
  Receive Date: 20180205
  Receipt Date: 20180227
  Transmission Date: 20180509
  Serious: Yes (Other)
  Sender: FDA-Public Use
  Company Number: IT-SUN PHARMACEUTICAL INDUSTRIES LTD-2018RR-162021

PATIENT
  Age: 68 Year
  Sex: Female
  Weight: 163 kg

DRUGS (2)
  1. GEMCITABINE [Suspect]
     Active Substance: GEMCITABINE\GEMCITABINE HYDROCHLORIDE
     Indication: BILIARY NEOPLASM
     Dosage: 1340 MG, CYCLICAL
     Route: 042
     Dates: start: 20170925, end: 20171204
  2. CISPLATIN. [Suspect]
     Active Substance: CISPLATIN
     Indication: BILIARY NEOPLASM
     Dosage: 33 MG, CYCLICAL
     Route: 042
     Dates: start: 20170925, end: 20171204

REACTIONS (2)
  - Neutropenia [Recovering/Resolving]
  - Hypertransaminasaemia [Recovering/Resolving]

NARRATIVE: CASE EVENT DATE: 20171024
